FAERS Safety Report 20376975 (Version 1)
Quarter: 2022Q1

REPORT INFORMATION
  Report Type: Spontaneous
  Country: US (occurrence: US)
  Receive Date: 20220125
  Receipt Date: 20220125
  Transmission Date: 20220423
  Serious: No
  Sender: FDA-Public Use
  Company Number: US-BIOMARINAP-US-2022-140708

PATIENT
  Age: 16 Year
  Sex: Male

DRUGS (1)
  1. PALYNZIQ [Suspect]
     Active Substance: PEGVALIASE-PQPZ
     Indication: Phenylketonuria
     Dosage: 2.5 MILLIGRAM
     Route: 058
     Dates: start: 20211022

REACTIONS (5)
  - Injection site urticaria [Recovered/Resolved]
  - Injection site swelling [Unknown]
  - Erythema [Unknown]
  - Arthralgia [Unknown]
  - Off label use [Unknown]
